FAERS Safety Report 8410799-5 (Version None)
Quarter: 2012Q2

REPORT INFORMATION
  Report Type: 
  Country: None (occurrence: None)
  Receive Date: 20120605
  Receipt Date: 20120528
  Transmission Date: 20120825
  Serious: Yes (Hospitalization)
  Sender: FDA-Public Use
  Company Number: ES-TEVA-322528ISR

PATIENT
  Age: 61 Year
  Sex: Male

DRUGS (2)
  1. METFORMIN HCL [Suspect]
     Indication: TYPE 2 DIABETES MELLITUS
     Dosage: 1700 MILLIGRAM;
     Route: 065
  2. METFORMIN HCL [Suspect]
     Dosage: 850 MILLIGRAM;
     Route: 065

REACTIONS (1)
  - HEPATOTOXICITY [None]
